FAERS Safety Report 13103231 (Version 2)
Quarter: 2017Q1

REPORT INFORMATION
  Report Type: Spontaneous
  Country: US (occurrence: US)
  Receive Date: 20170110
  Receipt Date: 20170131
  Transmission Date: 20170428
  Serious: No
  Sender: FDA-Public Use
  Company Number: US-ASTRAZENECA-2017SE01892

PATIENT
  Age: 30 Year
  Sex: Female
  Weight: 74.8 kg

DRUGS (3)
  1. PROGRAF [Concomitant]
     Active Substance: TACROLIMUS\TACROLIMUS ANHYDROUS
     Indication: IMMUNE SYSTEM DISORDER
     Route: 048
     Dates: start: 20100511
  2. MYFORTIC [Concomitant]
     Active Substance: MYCOPHENOLATE SODIUM
     Indication: IMMUNE SYSTEM DISORDER
     Route: 048
     Dates: start: 20100511
  3. SYMLIN [Suspect]
     Active Substance: PRAMLINTIDE ACETATE
     Indication: TYPE 1 DIABETES MELLITUS
     Route: 058
     Dates: start: 2008

REACTIONS (8)
  - Blood glucose increased [Unknown]
  - Intentional product misuse [Unknown]
  - Drug dose omission [Unknown]
  - Orthostatic hypotension [Unknown]
  - Infection [Unknown]
  - Injection site pain [Unknown]
  - Drug administration error [Unknown]
  - Product quality issue [Unknown]

NARRATIVE: CASE EVENT DATE: 2008
